FAERS Safety Report 8912985 (Version 1)
Quarter: 2012Q4

REPORT INFORMATION
  Report Type: Spontaneous
  Country: US (occurrence: None)
  Receive Date: 20121114
  Receipt Date: 20121114
  Transmission Date: 20130627
  Serious: Yes (Life-Threatening, Hospitalization)
  Sender: FDA-Public Use
  Company Number: None

PATIENT
  Age: 60 Year
  Sex: Female
  Weight: 82.1 kg

DRUGS (1)
  1. GILENYA [Suspect]
     Indication: MULTIPLE SCLEROSIS
     Dosage: one
     Route: 048
     Dates: start: 20120928, end: 20121111

REACTIONS (17)
  - Syncope [None]
  - Headache [None]
  - Diarrhoea [None]
  - Back pain [None]
  - Influenza like illness [None]
  - Hypertension [None]
  - Depression [None]
  - Dizziness [None]
  - Pruritus [None]
  - Weight decreased [None]
  - Vision blurred [None]
  - Eye pain [None]
  - Cough [None]
  - Dyspnoea [None]
  - Cystitis [None]
  - Somnolence [None]
  - Amnesia [None]
